FAERS Safety Report 6763251-7 (Version None)
Quarter: 2010Q2

REPORT INFORMATION
  Report Type: 
  Country: None (occurrence: None)
  Receive Date: 20100608
  Receipt Date: 20100608
  Transmission Date: 20101027
  Serious: Yes (Life-Threatening, Other)
  Sender: FDA-Public Use
  Company Number: None

PATIENT
  Age: 21 Year
  Sex: Female
  Weight: 136.0791 kg

DRUGS (1)
  1. CYCLOBENAZPRINE [Suspect]
     Indication: FIBROMYALGIA
     Dosage: 20MG 1X A DAY PO
     Route: 048
     Dates: start: 20100316, end: 20100601

REACTIONS (2)
  - DEPRESSION SUICIDAL [None]
  - SUICIDAL IDEATION [None]
